FAERS Safety Report 9271338 (Version 1)
Quarter: 2013Q2

REPORT INFORMATION
  Report Type: Spontaneous
  Country: US (occurrence: US)
  Receive Date: 20130506
  Receipt Date: 20130506
  Transmission Date: 20140414
  Serious: Yes (Other)
  Sender: FDA-Public Use
  Company Number: US-SANOFI-AVENTIS-2013SA045143

PATIENT
  Sex: Female
  Weight: 70 kg

DRUGS (6)
  1. LANTUS [Suspect]
     Indication: TYPE 1 DIABETES MELLITUS
     Dosage: DOSE: 100 UNITS WHEN BLOOD SUGAR IS 400, 500 AND 600 MG/DL DOSE:100 UNIT(S)
     Route: 058
     Dates: start: 2005, end: 20110419
  2. LEVOTHYROXINE [Concomitant]
     Indication: THYROID NEOPLASM
     Dosage: DOSE: 150 MG, 200 MG, 300 MG, 100 MG
     Dates: start: 1981, end: 20130130
  3. NORVASC [Concomitant]
     Indication: HYPERTENSION
     Dosage: 5 MG AND 10 MG PILLS
     Dates: end: 20130130
  4. BENAZEPRIL [Concomitant]
     Indication: HYPERTENSION
     Dates: end: 20130130
  5. INSULIN, REGULAR [Concomitant]
     Dosage: DOSE: 100 UNITS IF FASTING BLOOD GLUCOSEIS 600
     Dates: start: 199512, end: 20130130
  6. NOVOLIN 70/30 [Concomitant]
     Dosage: DOSE: 10 UNITS IF FASTING BLOOD GLUCOSE IS ABOVE 500 OR 400 MG/DL
     Dates: start: 199512, end: 20130130

REACTIONS (2)
  - Staphylococcal infection [Unknown]
  - Oedema [Recovering/Resolving]
